FAERS Safety Report 14557906 (Version 1)
Quarter: 2018Q1

REPORT INFORMATION
  Report Type: Spontaneous
  Country: US (occurrence: US)
  Receive Date: 20180221
  Receipt Date: 20180221
  Transmission Date: 20180509
  Serious: Yes (Other)
  Sender: FDA-Public Use
  Company Number: US-PFIZER INC-2018069055

PATIENT
  Age: 20 Year
  Sex: Female
  Weight: 65.77 kg

DRUGS (2)
  1. EFFEXOR XR [Suspect]
     Active Substance: VENLAFAXINE HYDROCHLORIDE
     Indication: DEPRESSION
     Dosage: 37.5MG, ONCE DAILY FOR A FEW DAYS
     Route: 048
     Dates: start: 201702
  2. EFFEXOR XR [Suspect]
     Active Substance: VENLAFAXINE HYDROCHLORIDE
     Dosage: 75MG, ONCE DAILY
     Route: 048
     Dates: end: 201708

REACTIONS (3)
  - Staphylococcal infection [Recovered/Resolved]
  - Furuncle [Recovered/Resolved]
  - Pruritus [Recovered/Resolved]

NARRATIVE: CASE EVENT DATE: 201702
